FAERS Safety Report 17144285 (Version 1)
Quarter: 2019Q4

REPORT INFORMATION
  Report Type: Spontaneous
  Country: JP (occurrence: JP)
  Receive Date: 20191211
  Receipt Date: 20191211
  Transmission Date: 20200122
  Serious: Yes (Hospitalization, Other)
  Sender: FDA-Public Use
  Company Number: JP-INGENUS PHARMACEUTICALS, LLC-2019INF000389

PATIENT
  Age: 54 Year
  Sex: Female
  Weight: 72.7 kg

DRUGS (2)
  1. TS-1 [Concomitant]
     Active Substance: GIMERACIL\OTERACIL\TEGAFUR
     Indication: GASTRIC CANCER STAGE III
     Dosage: 80-120 MILLIGRAM/DAY,ACCORDING TO BODY SURFACE AREA FOR 2 WEEKS
     Route: 065
  2. OXALIPLATIN. [Suspect]
     Active Substance: OXALIPLATIN
     Indication: GASTRIC CANCER STAGE III
     Dosage: 130 MILLIGRAM/SQ. METER, ON DAY 1, EVERY 3 WEEKS
     Route: 065

REACTIONS (2)
  - Hereditary motor and sensory neuropathy [Recovering/Resolving]
  - Condition aggravated [Recovering/Resolving]
